FAERS Safety Report 7325803-5 (Version None)
Quarter: 2011Q1

REPORT INFORMATION
  Report Type: 
  Country: None (occurrence: None)
  Receive Date: 20110302
  Receipt Date: 20110214
  Transmission Date: 20110831
  Serious: Yes (Other)
  Sender: FDA-Public Use
  Company Number: AU-JNJFOC-20110300110

PATIENT
  Sex: Female

DRUGS (1)
  1. LISTERINE TOTAL CARE [Suspect]
     Indication: PRODUCT USED FOR UNKNOWN INDICATION
     Route: 048

REACTIONS (3)
  - PAIN [None]
  - GINGIVAL INFECTION [None]
  - GINGIVAL SWELLING [None]
